FAERS Safety Report 9943134 (Version 2)
Quarter: 2014Q2

REPORT INFORMATION
  Report Type: Spontaneous
  Country: US (occurrence: US)
  Receive Date: 20140303
  Receipt Date: 20140506
  Transmission Date: 20141212
  Serious: Yes (Hospitalization)
  Sender: FDA-Public Use
  Company Number: US-GLAXOSMITHKLINE-A1061549A

PATIENT
  Age: 73 Year
  Sex: Male

DRUGS (2)
  1. ADVAIR [Suspect]
     Indication: CHRONIC OBSTRUCTIVE PULMONARY DISEASE
     Dosage: 1PUFF TWICE PER DAY
     Route: 055
     Dates: start: 2000
  2. NO CONCURRENT MEDICATION [Concomitant]

REACTIONS (3)
  - Bronchitis [Unknown]
  - Dyspnoea [Unknown]
  - Product quality issue [Unknown]
